FAERS Safety Report 8911829 (Version 2)
Quarter: 2012Q4

REPORT INFORMATION
  Report Type: 
  Country: US (occurrence: US)
  Receive Date: 20121115
  Receipt Date: 20121214
  Transmission Date: 20130627
  Serious: Yes (Death, Hospitalization)
  Sender: FDA-Public Use
  Company Number: US-GLAXOSMITHKLINE-A1001091A

PATIENT
  Age: 45 Year
  Sex: Female

DRUGS (1)
  1. FLOLAN [Suspect]
     Indication: PRODUCT USED FOR UNKNOWN INDICATION
     Dosage: 29.86NGKM Continuous
     Route: 042
     Dates: start: 20120130

REACTIONS (4)
  - Cardio-respiratory arrest [Fatal]
  - Pulmonary mass [Unknown]
  - Bronchoscopy [Unknown]
  - Dyspnoea [Unknown]
